FAERS Safety Report 23094719 (Version 2)
Quarter: 2024Q1

REPORT INFORMATION
  Report Type: Spontaneous
  Country: AU (occurrence: AU)
  Receive Date: 20231023
  Receipt Date: 20240122
  Transmission Date: 20240410
  Serious: Yes (Other)
  Sender: FDA-Public Use
  Company Number: AU-BRISTOL-MYERS SQUIBB COMPANY-2023-149813

PATIENT
  Sex: Male

DRUGS (7)
  1. OPDIVO [Suspect]
     Active Substance: NIVOLUMAB
     Indication: Metastatic malignant melanoma
     Dates: start: 202310
  2. MELOXICAM [Suspect]
     Active Substance: MELOXICAM
     Indication: Ankylosing spondylitis
  3. BASICA ACTIVE [Concomitant]
     Indication: Ankylosing spondylitis
  4. NEUROCALM [CHLORDIAZEPOXIDE;TRIFLUOPERAZINE HYDROCHLORIDE] [Concomitant]
     Indication: Ankylosing spondylitis
  5. INFLA MOOD [Concomitant]
     Indication: Ankylosing spondylitis
  6. MULTIGEN BIOTIC [Concomitant]
     Indication: Ankylosing spondylitis
  7. CARTRIN [Concomitant]
     Indication: Ankylosing spondylitis

REACTIONS (2)
  - Ankylosing spondylitis [Unknown]
  - Gastritis [Unknown]

NARRATIVE: CASE EVENT DATE: 20231001
